FAERS Safety Report 4951414-2 (Version None)
Quarter: 2006Q1

REPORT INFORMATION
  Report Type: 
  Country: None (occurrence: None)
  Receive Date: 20060323
  Receipt Date: 20060313
  Transmission Date: 20060701
  Serious: Yes (Other)
  Sender: FDA-Public Use
  Company Number: DE-JNJFOC-20060201904

PATIENT
  Sex: Female
  Weight: 78 kg

DRUGS (4)
  1. RISPERDAL [Suspect]
     Route: 048
  2. RISPERDAL [Suspect]
     Route: 048
  3. CIBACEN [Concomitant]
  4. L-THYROXIN [Concomitant]
     Indication: HYPOTHYROIDISM

REACTIONS (4)
  - BRADYCARDIA [None]
  - DIZZINESS [None]
  - HYPOTHERMIA [None]
  - SOMNOLENCE [None]
